FAERS Safety Report 11609958 (Version 2)
Quarter: 2015Q4

REPORT INFORMATION
  Report Type: Spontaneous
  Country: JP (occurrence: JP)
  Receive Date: 20151007
  Receipt Date: 20151018
  Transmission Date: 20160304
  Serious: Yes (Hospitalization)
  Sender: FDA-Public Use
  Company Number: JP-AMGEN-JPNSP2015104381

PATIENT
  Sex: Male
  Weight: 2 kg

DRUGS (1)
  1. PRALIA [Suspect]
     Active Substance: DENOSUMAB
     Indication: EXPOSURE DURING PREGNANCY
     Dosage: UNK
     Route: 065

REACTIONS (1)
  - Tachypnoea [Recovered/Resolved]
